FAERS Safety Report 4431864-3 (Version None)
Quarter: 2004Q3

REPORT INFORMATION
  Report Type: 
  Country: None (occurrence: None)
  Receive Date: 20040818
  Receipt Date: 20040803
  Transmission Date: 20050211
  Serious: Yes (Other)
  Sender: FDA-Public Use
  Company Number: F01200402329

PATIENT
  Age: 70 Year
  Sex: Female
  Weight: 62.1 kg

DRUGS (10)
  1. OXALIPLATIN - SOLUTION - 130 MG/M2 [Suspect]
     Indication: COLORECTAL CANCER
     Dosage: 130 MG/M2 Q3W - INTRAVENOUS NOS
     Route: 042
     Dates: start: 20040401, end: 20040401
  2. CAPECITABINE - TABLET - 850 MG/M2 [Suspect]
     Dosage: 850 MG/M2 TWICE DAILY FROM D1 TO D15, Q3W - ORAL
     Route: 048
     Dates: start: 20040401, end: 20040415
  3. AVASTIN [Suspect]
     Dosage: 7.5 MG/KG OVER 30-90 MINUTES IV INFUSION ON DAY 1 Q3W - INTRAVENOUS NOS
     Route: 042
     Dates: start: 20040401, end: 20040401
  4. FENTANYL [Concomitant]
  5. FERROUS SULFATE TAB [Concomitant]
  6. HEPARIN-FRACTION, SODIUM SALT [Concomitant]
  7. DIPHENOXYLATE HCL + ATROPINE SULFATE [Concomitant]
  8. METRONIDAZOLE [Concomitant]
  9. PAROXETINE HYDROCHLORIDE [Concomitant]
  10. ESOMEPRAZOLE [Concomitant]

REACTIONS (8)
  - HAEMOGLOBIN DECREASED [None]
  - PNEUMONIA [None]
  - POST PROCEDURAL COMPLICATION [None]
  - POSTOPERATIVE INFECTION [None]
  - STAPHYLOCOCCAL INFECTION [None]
  - TREATMENT NONCOMPLIANCE [None]
  - WOUND DEHISCENCE [None]
  - WOUND HAEMORRHAGE [None]
